FAERS Safety Report 9017765 (Version 2)
Quarter: 2013Q1

REPORT INFORMATION
  Report Type: Spontaneous
  Country: US (occurrence: US)
  Receive Date: 20130118
  Receipt Date: 20130227
  Transmission Date: 20140127
  Serious: Yes (Hospitalization)
  Sender: FDA-Public Use
  Company Number: US-BIOGENIDEC-2013BI003642

PATIENT
  Age: 61 Year
  Sex: Female

DRUGS (5)
  1. TYSABRI [Suspect]
     Indication: MULTIPLE SCLEROSIS
     Route: 042
     Dates: start: 20060911
  2. AVONEX [Concomitant]
     Indication: MULTIPLE SCLEROSIS
     Route: 030
     Dates: start: 19960601
  3. FIBERCON [Concomitant]
     Indication: CONSTIPATION
  4. MIRALAX [Concomitant]
     Indication: CONSTIPATION
  5. DETROL [Concomitant]

REACTIONS (9)
  - Constipation [Recovered/Resolved]
  - Pyrexia [Recovered/Resolved]
  - Dyspnoea [Recovered/Resolved]
  - Gastrointestinal necrosis [Recovered/Resolved]
  - Large intestinal obstruction [Recovered/Resolved]
  - Colostomy closure [Recovered/Resolved]
  - Incision site infection [Recovered/Resolved]
  - Frostbite [Recovered/Resolved]
  - Hypoaesthesia [Not Recovered/Not Resolved]
